FAERS Safety Report 5229602-X (Version None)
Quarter: 2007Q1

REPORT INFORMATION
  Report Type: 
  Country: None (occurrence: None)
  Receive Date: 20070201
  Receipt Date: 20070122
  Transmission Date: 20070707
  Serious: Yes (Hospitalization)
  Sender: FDA-Public Use
  Company Number: JPI-P-000390

PATIENT
  Age: 60 Year
  Sex: Female
  Weight: 55.3388 kg

DRUGS (2)
  1. XYREM [Suspect]
     Indication: INSOMNIA
     Dosage: 6 GM (3 GM, 2 IN 1 D), ORAL
     Route: 048
     Dates: start: 20061201, end: 20061201
  2. ULTRAM [Concomitant]

REACTIONS (4)
  - GASTRIC HAEMORRHAGE [None]
  - HAEMATOCHEZIA [None]
  - HALLUCINATION [None]
  - VOMITING [None]
